FAERS Safety Report 11515388 (Version 1)
Quarter: 2015Q3

REPORT INFORMATION
  Report Type: Spontaneous
  Country: JP (occurrence: JP)
  Receive Date: 20150916
  Receipt Date: 20150916
  Transmission Date: 20151125
  Serious: Yes (Other)
  Sender: FDA-Public Use
  Company Number: JP-BAUSCH-BL-2015-021631

PATIENT
  Age: 56 Year
  Sex: Female

DRUGS (6)
  1. EPIRUBICIN [Suspect]
     Active Substance: EPIRUBICIN
     Indication: HER-2 POSITIVE BREAST CANCER
     Route: 065
  2. FLUOROURACIL. [Suspect]
     Active Substance: FLUOROURACIL
     Indication: HER-2 POSITIVE BREAST CANCER
     Route: 065
  3. TRASTUZUMAB [Concomitant]
     Active Substance: TRASTUZUMAB
     Indication: HER-2 POSITIVE BREAST CANCER
  4. CYCLOPHOSPHAMIDE. [Suspect]
     Active Substance: CYCLOPHOSPHAMIDE
     Indication: HER-2 POSITIVE BREAST CANCER
     Route: 065
  5. PERTUZUMAB [Concomitant]
     Active Substance: PERTUZUMAB
     Indication: HER-2 POSITIVE BREAST CANCER
  6. DOCETAXEL. [Concomitant]
     Active Substance: DOCETAXEL
     Indication: HER-2 POSITIVE BREAST CANCER

REACTIONS (3)
  - Dysgeusia [Unknown]
  - Decreased appetite [Unknown]
  - Neutropenia [Unknown]
